FAERS Safety Report 7917742-3 (Version None)
Quarter: 2011Q4

REPORT INFORMATION
  Report Type: 
  Country: None (occurrence: None)
  Receive Date: 20111116
  Receipt Date: 20111107
  Transmission Date: 20120403
  Serious: Yes (Hospitalization)
  Sender: FDA-Public Use
  Company Number: NL-MEDIMMUNE-MEDI-0013881

PATIENT
  Sex: Male
  Weight: 10.9 kg

DRUGS (2)
  1. SYNAGIS [Suspect]
     Route: 030
     Dates: start: 20111010, end: 20111010
  2. SYNAGIS [Suspect]
     Route: 030
     Dates: start: 20111107, end: 20111107

REACTIONS (4)
  - EAR TUBE INSERTION [None]
  - OTORRHOEA [None]
  - ADENOIDECTOMY [None]
  - NASOPHARYNGITIS [None]
